FAERS Safety Report 6961508-8 (Version None)
Quarter: 2010Q3

REPORT INFORMATION
  Report Type: 
  Country: None (occurrence: None)
  Receive Date: 20100901
  Receipt Date: 20100812
  Transmission Date: 20110219
  Serious: Yes (Hospitalization, Other)
  Sender: FDA-Public Use
  Company Number: PHEH2008US08947

PATIENT
  Sex: Female

DRUGS (71)
  1. ZOMETA [Suspect]
     Dosage: UNK
  2. AREDIA [Suspect]
     Dosage: MONTHLY
     Dates: end: 20040101
  3. THALIDOMIDE [Concomitant]
  4. MORPHINE SULFATE [Concomitant]
  5. FLUOXETINE [Concomitant]
     Dosage: 20 MG
     Route: 048
  6. PREMARIN [Concomitant]
     Dosage: 1.25 MG
     Route: 048
  7. LEVOXYL [Concomitant]
  8. POTASSIUM CHLORIDE [Concomitant]
     Dosage: 10 MG / BID
     Route: 048
  9. FUROSEMIDE [Concomitant]
     Dosage: 40 MG
     Route: 048
  10. ALPHAGAN P [Concomitant]
  11. CEPHALEXIN [Concomitant]
  12. HYDROCODONE BITARTRATE AND ACETAMINOPHEN [Concomitant]
     Route: 048
  13. LIDOCAINE HCL VISCOUS [Concomitant]
  14. ACYCLOVIR SODIUM [Concomitant]
  15. MEGESTROL [Concomitant]
  16. GABAPENTIN [Concomitant]
     Dosage: 100 MG
     Route: 048
  17. LEVOTHYROXINE [Concomitant]
     Dosage: 50 MG / DAILY
  18. METOLAZONE [Concomitant]
  19. AMBIEN [Concomitant]
  20. LYRICA [Concomitant]
     Dosage: 75 MG
     Route: 048
  21. DARVOCET-N 100 [Concomitant]
  22. CIPROFLOXACIN HYDROCHLORIDE [Concomitant]
  23. VANCOMYCIN [Concomitant]
  24. PANAFIL [Concomitant]
  25. ZYVOX [Concomitant]
  26. ALBUTEROL SULFATE [Concomitant]
  27. NYSTOP [Concomitant]
  28. MYCOSTATIN [Concomitant]
  29. TRIAMCINOLONE [Concomitant]
  30. FLUCONAZOLE [Concomitant]
  31. PROCRIT                            /00909301/ [Concomitant]
  32. MEGACE [Concomitant]
  33. ZINACEF [Concomitant]
  34. MELPHALAN [Concomitant]
  35. DECADRON [Concomitant]
  36. NABUMETONE [Concomitant]
  37. NEUPOGEN [Concomitant]
  38. MS CONTIN [Concomitant]
     Dosage: 15 MG
     Route: 048
  39. CELEBREX [Concomitant]
  40. ADRIAMYCIN PFS [Concomitant]
  41. VINCRISTINE [Concomitant]
  42. NEURONTIN [Concomitant]
     Dosage: 600 MG / BID
     Route: 048
  43. LASIX [Concomitant]
     Dosage: 40 MG / DAILY
  44. PROZAC [Concomitant]
     Dosage: 20 MG / DAILY
  45. ALPHAGAN [Concomitant]
     Dosage: UNK / GHS
  46. CIPROFLOXACIN [Concomitant]
     Dosage: 500 MG
     Route: 048
  47. MORPHINE [Concomitant]
     Dosage: 15 MG / BID
     Route: 048
  48. VICODIN [Concomitant]
     Dosage: 7.5/750
  49. KETOCONAZOLE [Concomitant]
     Dosage: UNK
  50. MUPIROCIN [Concomitant]
     Dosage: UNK
  51. FAMOTIDINE [Concomitant]
  52. LORAZEPAM [Concomitant]
  53. DIPHENHYDRAMINE HCL [Concomitant]
  54. HYDROCORTISONE [Concomitant]
  55. LEVOFLOXACIN [Concomitant]
  56. KETOROLAC [Concomitant]
  57. PROMETHAZINE [Concomitant]
  58. OXYCONTIN [Concomitant]
     Dosage: UNK
  59. PHENERGAN ^AVENTIS PHARMA^ [Concomitant]
     Dosage: UNK
  60. TEQUIN [Concomitant]
     Dosage: UNK
  61. EPOGEN [Concomitant]
     Dosage: UNK
  62. ROXANOL [Concomitant]
     Dosage: UNK
  63. PREDNISONE [Concomitant]
     Dosage: UNK
  64. RELAFEN [Concomitant]
     Dosage: UNK
  65. WARFARIN SODIUM [Concomitant]
     Dosage: UNK
  66. OXYCODONE [Concomitant]
     Dosage: UNK
  67. DILANTIN [Concomitant]
     Dosage: 100 MG, TID
  68. TEMODAR [Concomitant]
     Dosage: 140 MG, QD
  69. COBALT [Concomitant]
  70. DEXAMETHASONE [Concomitant]
     Dosage: 4 MG, QID
  71. OXYCONTIN [Concomitant]
     Dosage: 80 MG, TID

REACTIONS (99)
  - ABSCESS DRAINAGE [None]
  - ANAEMIA [None]
  - ANHEDONIA [None]
  - ANXIETY [None]
  - ARTERIOSCLEROSIS [None]
  - ATELECTASIS [None]
  - AZOTAEMIA [None]
  - BACK PAIN [None]
  - BLADDER NECK OPERATION [None]
  - BLOOD CREATININE INCREASED [None]
  - BLOOD LACTATE DEHYDROGENASE INCREASED [None]
  - BONE DISORDER [None]
  - BONE FISSURE [None]
  - BRONCHITIS [None]
  - BRUXISM [None]
  - CATARACT OPERATION [None]
  - CELLULITIS [None]
  - CENTRAL VENOUS CATHETERISATION [None]
  - CEREBRAL INFARCTION [None]
  - COLPOCELE [None]
  - CONFUSIONAL STATE [None]
  - CORNEAL OPERATION [None]
  - CULTURE URINE POSITIVE [None]
  - CYSTOPEXY [None]
  - CYSTOSCOPY [None]
  - DEBRIDEMENT [None]
  - DECUBITUS ULCER [None]
  - DEPRESSION [None]
  - DIABETES MELLITUS [None]
  - DISABILITY [None]
  - DYSPHAGIA [None]
  - EAR HAEMORRHAGE [None]
  - EAR PAIN [None]
  - ESCHERICHIA INFECTION [None]
  - FACIAL BONES FRACTURE [None]
  - FALL [None]
  - FEMORAL ARTERIAL STENOSIS [None]
  - GANGRENE [None]
  - GINGIVAL BLEEDING [None]
  - GINGIVAL SWELLING [None]
  - GLAUCOMA [None]
  - HAEMATOCHEZIA [None]
  - HAEMORRHAGE [None]
  - HEARING IMPAIRED [None]
  - HERPES ZOSTER [None]
  - HIP FRACTURE [None]
  - HYPOAESTHESIA [None]
  - HYPOKALAEMIA [None]
  - HYPOTHYROIDISM [None]
  - HYPOXIA [None]
  - INFECTED SKIN ULCER [None]
  - INJURY [None]
  - INSOMNIA [None]
  - INTERNAL FIXATION OF FRACTURE [None]
  - INTERVERTEBRAL DISC DEGENERATION [None]
  - INTRAOCULAR LENS IMPLANT [None]
  - KIDNEY SMALL [None]
  - LEUKOPENIA [None]
  - MASTOIDITIS [None]
  - MENTAL STATUS CHANGES [None]
  - MULTIPLE FRACTURES [None]
  - NEUROPATHIC ULCER [None]
  - NEUROPATHY PERIPHERAL [None]
  - OEDEMA PERIPHERAL [None]
  - OPEN REDUCTION OF FRACTURE [None]
  - OSTEOARTHRITIS [None]
  - OSTEOLYSIS [None]
  - OSTEOMA [None]
  - OSTEOMYELITIS [None]
  - OSTEONECROSIS OF JAW [None]
  - OSTEOPENIA [None]
  - OTITIS MEDIA [None]
  - PAIN [None]
  - PAIN IN EXTREMITY [None]
  - PAIN IN JAW [None]
  - PANCYTOPENIA [None]
  - PARAESTHESIA [None]
  - PERIPHERAL COLDNESS [None]
  - PLEURAL EFFUSION [None]
  - PNEUMONIA [None]
  - POOR PERIPHERAL CIRCULATION [None]
  - POST HERPETIC NEURALGIA [None]
  - PRIMARY SEQUESTRUM [None]
  - PROTEIN URINE [None]
  - RENAL CYST [None]
  - RENAL FAILURE CHRONIC [None]
  - SCOLIOSIS [None]
  - SKIN DISCOLOURATION [None]
  - SKIN ULCER [None]
  - SPINAL COLUMN INJURY [None]
  - SPINAL OSTEOARTHRITIS [None]
  - STAPHYLOCOCCAL INFECTION [None]
  - STRESS URINARY INCONTINENCE [None]
  - SWELLING [None]
  - THROMBOCYTOPENIA [None]
  - THYROID NEOPLASM [None]
  - TOOTHACHE [None]
  - VAGINAL PROLAPSE [None]
  - VISUAL IMPAIRMENT [None]
